FAERS Safety Report 12761199 (Version 2)
Quarter: 2016Q4

REPORT INFORMATION
  Report Type: Other
  Country: None (occurrence: JP)
  Receive Date: 20160920
  Receipt Date: 20161027
  Transmission Date: 20170207
  Serious: Yes (Hospitalization)
  Sender: FDA-Public Use
  Company Number: JP-LUPIN PHARMACEUTICALS INC.-2016-02587

PATIENT
  Age: 63 Year
  Sex: Male
  Weight: 48.1 kg

DRUGS (3)
  1. OMEPRAL [Concomitant]
     Active Substance: OMEPRAZOLE
     Indication: GASTRIC DISORDER
     Route: 042
     Dates: start: 20160414, end: 20160511
  2. OMEPRAZOLE FOR INJECTION, 20MG, ^AMEL^ [Suspect]
     Active Substance: OMEPRAZOLE
     Indication: GASTRIC DISORDER
     Route: 042
     Dates: start: 20160414, end: 20160511
  3. CARBAZOCHROME SODIUM SULFONATE [Concomitant]
     Active Substance: CARBAZOCHROME SODIUM SULFONATE
     Indication: ANGIOPATHY
     Dosage: 50 MG/10 ML
     Route: 042
     Dates: start: 20160414, end: 20160501

REACTIONS (4)
  - Liver disorder [Recovered/Resolved]
  - Thrombocytopenia [Recovered/Resolved]
  - Toxicity to various agents [Unknown]
  - Erythropenia [Recovered/Resolved]

NARRATIVE: CASE EVENT DATE: 20160430
